FAERS Safety Report 9814832 (Version 2)
Quarter: 2014Q1

REPORT INFORMATION
  Report Type: Spontaneous
  Country: US (occurrence: US)
  Receive Date: 20140113
  Receipt Date: 20140324
  Transmission Date: 20141002
  Serious: Yes (Other)
  Sender: FDA-Public Use
  Company Number: US-GLAXOSMITHKLINE-A1055260A

PATIENT
  Sex: Female

DRUGS (1)
  1. ADVAIR [Suspect]
     Indication: ASTHMA
     Route: 055

REACTIONS (4)
  - Adverse drug reaction [Not Recovered/Not Resolved]
  - Growth retardation [Unknown]
  - Mental disorder [Unknown]
  - Weight increased [Unknown]
